FAERS Safety Report 8977449 (Version 2)
Quarter: 2013Q2

REPORT INFORMATION
  Report Type: Spontaneous
  Country: US (occurrence: US)
  Receive Date: 20121220
  Receipt Date: 20130508
  Transmission Date: 20140414
  Serious: No
  Sender: FDA-Public Use
  Company Number: US-PFIZER INC-2012321695

PATIENT
  Age: 48 Year
  Sex: Female

DRUGS (15)
  1. RELPAX [Suspect]
     Indication: HEADACHE
     Dosage: 20 MG, I PO, MAY REPEAT IN 2 HOURS, DO NOT EXCEED 4/DAY
     Route: 048
  2. GABAPENTIN [Suspect]
     Dosage: 300 MG, 3X/DAY
     Route: 048
  3. LANTUS [Concomitant]
     Dosage: 100 IU/ML, SOLUTION 20 U AND 10 U BID
  4. HUMALOG [Concomitant]
     Dosage: 100 IU/ML, SOLUTION 4-8 UNITS PER MEAL TID
  5. PROTONIX [Concomitant]
     Dosage: 40 MG, 1 TABLET ONCE A DAY
  6. LISINOPRIL [Concomitant]
     Dosage: 20 MG, 1 TABLET ONCE A DAY
  7. BECONASE AQ [Concomitant]
     Dosage: 42 MCG/ SPRAY SUSPENSION 1 PUFF IN EACH NOSTRIL TWICE A DAY
     Route: 045
  8. CYMBALTA [Concomitant]
     Dosage: 30 MG, 1 CAPSULE TWICE A DAY
  9. CYCLOBENZAPRINE HCL [Concomitant]
     Dosage: 10 MG, 1 TABLET THREE TIMES A DAY
  10. TRAMADOL HCL [Concomitant]
     Dosage: 50 TABLET TAKE OE TABLET BY MOUTH EVERY 6 HOURS AS NEEDED FOUR TIMES A DAY PRN
     Route: 048
     Dates: end: 20130502
  11. LIPITOR [Concomitant]
     Dosage: 40 MG, 1 TABLET QHS
  12. LEVOTHYROXINE SODIUM [Concomitant]
     Dosage: 112 UG, 1 TABLET EVERY MORNING ON AN EMPTY STOMACH ONCA A DAY
  13. TRAZODONE HCL [Concomitant]
     Dosage: 50 MG, 1-2 TABLET AT BEDTIME ONCE A DAY
  14. DIFLUCAN [Concomitant]
     Dosage: 150 MG, 1 TABLET ONCE A DAY
  15. NAPROXEN [Concomitant]
     Indication: INFLAMMATION
     Dosage: 500 MG, 1 TABLET TWICE A DAY PRN

REACTIONS (3)
  - Malaise [Unknown]
  - Impaired work ability [Unknown]
  - Incorrect dose administered [Unknown]
